FAERS Safety Report 18419707 (Version 1)
Quarter: 2020Q4

REPORT INFORMATION
  Report Type: Spontaneous
  Country: US (occurrence: US)
  Receive Date: 20201023
  Receipt Date: 20201023
  Transmission Date: 20210114
  Serious: Yes (Other)
  Sender: FDA-Public Use
  Company Number: None

PATIENT
  Sex: Male

DRUGS (2)
  1. UROXATRAL [Suspect]
     Active Substance: ALFUZOSIN HYDROCHLORIDE
  2. OXYBUTYNIN 5 MG [Suspect]
     Active Substance: OXYBUTYNIN

REACTIONS (2)
  - Dizziness [None]
  - Dry mouth [None]
